FAERS Safety Report 9580391 (Version 1)
Quarter: 2013Q3

REPORT INFORMATION
  Report Type: Spontaneous
  Country: US (occurrence: None)
  Receive Date: 20130916
  Receipt Date: 20130916
  Transmission Date: 20140515
  Serious: Yes (Other)
  Sender: FDA-Public Use
  Company Number: JPI-P-024129

PATIENT
  Age: 48 Year
  Sex: Male

DRUGS (9)
  1. XYREM (500 MILLIGRAM/MILLILITERS, SOLUTION) (SODIUM OXYBATE) [Suspect]
     Indication: NARCOLEPSY
     Route: 048
     Dates: start: 20120807, end: 20120811
  2. XYREM (500 MILLIGRAM/MILLILITERS, SOLUTION) (SODIUM OXYBATE) [Suspect]
     Indication: SOMNOLENCE
     Route: 048
     Dates: start: 20120807, end: 20120811
  3. SILDENAFIL CITRATE [Suspect]
     Indication: PRODUCT USED FOR UNKNOWN INDICATION
  4. VITAMIN B COMPLEX [Concomitant]
  5. TADALAFIL [Concomitant]
  6. MODAFINIL [Concomitant]
  7. AMPHETAMINE, DEXTROAMPHETAMINE MIXED SALTS [Concomitant]
  8. DULOXETINE HYDROCHLORIDE [Concomitant]
  9. FLUTICASONE [Concomitant]

REACTIONS (12)
  - Blood pressure increased [None]
  - Dyspnoea [None]
  - Dry mouth [None]
  - Abnormal behaviour [None]
  - Dermatillomania [None]
  - Dysphonia [None]
  - Nausea [None]
  - Insomnia [None]
  - Vomiting [None]
  - Feeling abnormal [None]
  - Dyskinesia [None]
  - Fatigue [None]
